FAERS Safety Report 8383209-4 (Version None)
Quarter: 2012Q2

REPORT INFORMATION
  Report Type: 
  Country: None (occurrence: None)
  Receive Date: 20120524
  Receipt Date: 20120509
  Transmission Date: 20120825
  Serious: Yes (Hospitalization, Other)
  Sender: FDA-Public Use
  Company Number: US-JNJFOC-20120108610

PATIENT
  Sex: Female

DRUGS (3)
  1. REMICADE [Suspect]
     Indication: CROHN'S DISEASE
     Route: 042
  2. CIPROFLOXACIN [Concomitant]
     Route: 065
  3. PROTONIX [Concomitant]
     Route: 048

REACTIONS (4)
  - CROHN'S DISEASE [None]
  - MATERNAL EXPOSURE DURING PREGNANCY [None]
  - PYODERMA GANGRENOSUM [None]
  - ANAEMIA OF PREGNANCY [None]
